FAERS Safety Report 19830747 (Version 1)
Quarter: 2021Q3

REPORT INFORMATION
  Report Type: Spontaneous
  Country: US (occurrence: US)
  Receive Date: 20210915
  Receipt Date: 20210915
  Transmission Date: 20211014
  Serious: Yes (Hospitalization, Other)
  Sender: FDA-Public Use
  Company Number: US-HIKMA PHARMACEUTICALS USA INC.-US-H14001-21-55390

PATIENT
  Age: 70 Year
  Sex: Female

DRUGS (1)
  1. VANCOMYCIN [Suspect]
     Active Substance: VANCOMYCIN
     Indication: CELLULITIS
     Dosage: UNKNOWN
     Route: 065

REACTIONS (5)
  - IgA nephropathy [Recovering/Resolving]
  - Condition aggravated [Recovering/Resolving]
  - Glomerulonephritis proliferative [Recovering/Resolving]
  - Renal impairment [Recovering/Resolving]
  - Henoch-Schonlein purpura [Recovering/Resolving]
